FAERS Safety Report 12488698 (Version 1)
Quarter: 2016Q2

REPORT INFORMATION
  Report Type: Spontaneous
  Country: US (occurrence: US)
  Receive Date: 20160622
  Receipt Date: 20160622
  Transmission Date: 20160815
  Serious: Yes (Disabling, Other)
  Sender: FDA-Public Use
  Company Number: US-NOVOPROD-497002

PATIENT
  Sex: Male

DRUGS (1)
  1. VICTOZA [Suspect]
     Active Substance: LIRAGLUTIDE
     Indication: PRODUCT USED FOR UNKNOWN INDICATION
     Dosage: UNK
     Route: 058
     Dates: start: 20140604, end: 20140610

REACTIONS (4)
  - Limb injury [Unknown]
  - Renal failure [Unknown]
  - Pancreatic disorder [Unknown]
  - Organ failure [Unknown]

NARRATIVE: CASE EVENT DATE: 20140610
